FAERS Safety Report 15402403 (Version 1)
Quarter: 2018Q4

REPORT INFORMATION
  Report Type: Spontaneous
  Country: FR (occurrence: FR)
  Receive Date: 20180919
  Receipt Date: 20180919
  Transmission Date: 20190204
  Serious: Yes (Other)
  Sender: FDA-Public Use
  Company Number: FR-PFIZER INC-2018368076

PATIENT
  Sex: Male

DRUGS (12)
  1. IMOVANE [Suspect]
     Active Substance: ZOPICLONE
     Dosage: UNK
     Route: 048
  2. XATRAL [ALFUZOSIN HYDROCHLORIDE] [Suspect]
     Active Substance: ALFUZOSIN
     Dosage: UNK
     Route: 048
  3. AERIUS (DESLORATADINE) [Suspect]
     Active Substance: DESLORATADINE
     Dosage: UNK
     Route: 048
  4. AMLOR [Suspect]
     Active Substance: AMLODIPINE BESYLATE
     Dosage: UNK
     Route: 048
  5. DAFALGAN [Suspect]
     Active Substance: ACETAMINOPHEN
     Dosage: UNK
     Route: 048
  6. AVODART [Suspect]
     Active Substance: DUTASTERIDE
     Dosage: UNK
     Route: 048
  7. TOPALGIC (TRAMADOL HYDROCHLORIDE) [Suspect]
     Active Substance: TRAMADOL HYDROCHLORIDE
     Dosage: UNK
     Route: 048
  8. FOLIC ACID. [Suspect]
     Active Substance: FOLIC ACID
     Dosage: UNK
     Route: 048
  9. RISPERDAL [Suspect]
     Active Substance: RISPERIDONE
     Dosage: UNK
     Route: 048
  10. KAYEXALATE [Suspect]
     Active Substance: SODIUM POLYSTYRENE SULFONATE
     Dosage: UNK
     Route: 048
  11. ALPRAZOLAM. [Suspect]
     Active Substance: ALPRAZOLAM
     Dosage: UNK
     Route: 048
  12. DUPHALAC [Suspect]
     Active Substance: LACTULOSE
     Dosage: UNK
     Route: 048

REACTIONS (3)
  - Eczema [Not Recovered/Not Resolved]
  - Dermatitis psoriasiform [Not Recovered/Not Resolved]
  - Toxic skin eruption [Not Recovered/Not Resolved]

NARRATIVE: CASE EVENT DATE: 2018
